FAERS Safety Report 8599613 (Version 3)
Quarter: 2014Q1

REPORT INFORMATION
  Report Type: Spontaneous
  Country: US (occurrence: US)
  Receive Date: 20120605
  Receipt Date: 20140102
  Transmission Date: 20141002
  Serious: No
  Sender: FDA-Public Use
  Company Number: US-ASTRAZENECA-2012SE32925

PATIENT
  Age: 59 Year
  Sex: Female

DRUGS (9)
  1. TOPROL XL [Suspect]
     Indication: SUPRAVENTRICULAR TACHYCARDIA
     Route: 048
  2. TOPROL XL [Suspect]
     Indication: HEART RATE INCREASED
     Route: 048
  3. TOPROL XL [Suspect]
     Indication: SUPRAVENTRICULAR TACHYCARDIA
     Route: 048
     Dates: start: 1992, end: 201312
  4. TOPROL XL [Suspect]
     Indication: HEART RATE INCREASED
     Route: 048
     Dates: start: 1992, end: 201312
  5. TOPROL XL [Suspect]
     Indication: SUPRAVENTRICULAR TACHYCARDIA
     Route: 048
  6. TOPROL XL [Suspect]
     Indication: HEART RATE INCREASED
     Route: 048
  7. TOPROL XL [Suspect]
     Indication: SUPRAVENTRICULAR TACHYCARDIA
     Route: 048
  8. TOPROL XL [Suspect]
     Indication: HEART RATE INCREASED
     Route: 048
  9. METOPROLOL [Suspect]
     Dosage: GENERIC
     Route: 048

REACTIONS (13)
  - Drug hypersensitivity [Unknown]
  - Malaise [Unknown]
  - Blood pressure increased [Unknown]
  - Local swelling [Unknown]
  - Heart rate increased [Not Recovered/Not Resolved]
  - Joint swelling [Unknown]
  - Swelling [Unknown]
  - Feeling abnormal [Unknown]
  - Feeling jittery [Not Recovered/Not Resolved]
  - Palpitations [Unknown]
  - Off label use [Unknown]
  - Drug dose omission [Not Recovered/Not Resolved]
  - Intentional drug misuse [Unknown]
